FAERS Safety Report 20855849 (Version 12)
Quarter: 2025Q1

REPORT INFORMATION
  Report Type: Report from Study
  Country: US (occurrence: US)
  Receive Date: 20220520
  Receipt Date: 20250213
  Transmission Date: 20250408
  Serious: Yes (Hospitalization)
  Sender: TAKEDA
  Company Number: US-TAKEDA-2021TUS033791

PATIENT
  Age: 62 Year
  Sex: Female
  Weight: 137 kg

DRUGS (58)
  1. HUMAN IMMUNOGLOBULIN G [Suspect]
     Active Substance: HUMAN IMMUNOGLOBULIN G
     Indication: Immunodeficiency common variable
     Dosage: 45 GRAM, Q4WEEKS
     Dates: start: 20190510
  2. HUMAN IMMUNOGLOBULIN G [Suspect]
     Active Substance: HUMAN IMMUNOGLOBULIN G
     Dosage: 45 GRAM, Q4WEEKS
  3. METHOCARBAMOL [Suspect]
     Active Substance: METHOCARBAMOL
     Indication: Product used for unknown indication
  4. PHENTERMINE [Concomitant]
     Active Substance: PHENTERMINE
  5. TIZANIDINE [Concomitant]
     Active Substance: TIZANIDINE
  6. MELOXICAM [Concomitant]
     Active Substance: MELOXICAM
  7. ZYRTEC [Concomitant]
     Active Substance: CETIRIZINE HYDROCHLORIDE
  8. MUCINEX [Concomitant]
     Active Substance: GUAIFENESIN
  9. ACETAMINOPHEN [Concomitant]
     Active Substance: ACETAMINOPHEN
  10. DIPHENHYDRAMINE [Concomitant]
     Active Substance: DIPHENHYDRAMINE
  11. SODIUM CHLORIDE [Concomitant]
     Active Substance: SODIUM CHLORIDE
  12. EPINEPHRINE [Concomitant]
     Active Substance: EPINEPHRINE
  13. OMEPRAZOLE [Concomitant]
     Active Substance: OMEPRAZOLE
  14. ZINC GLUCONATE [Concomitant]
     Active Substance: ZINC GLUCONATE
  15. TART CHERRY [Concomitant]
  16. FASENRA [Concomitant]
     Active Substance: BENRALIZUMAB
  17. VITAMIN C [Concomitant]
     Active Substance: ASCORBIC ACID
  18. APPLE CIDER VINEGAR [Concomitant]
     Active Substance: APPLE CIDER VINEGAR
  19. CALCIUM CITRATE\CHOLECALCIFEROL [Concomitant]
     Active Substance: CALCIUM CITRATE\CHOLECALCIFEROL
     Indication: Product used for unknown indication
  20. ALBUTEROL SULFATE [Concomitant]
     Active Substance: ALBUTEROL SULFATE
  21. BUDESONIDE [Concomitant]
     Active Substance: BUDESONIDE
  22. ACETYLCYSTEINE [Concomitant]
     Active Substance: ACETYLCYSTEINE
  23. IPRATROPIUM BROMIDE AND ALBUTEROL SULFATE [Concomitant]
     Active Substance: ALBUTEROL SULFATE\IPRATROPIUM BROMIDE
  24. COMBIVENT RESPIMAT [Concomitant]
     Active Substance: ALBUTEROL SULFATE\IPRATROPIUM BROMIDE
  25. VITAMIN D3 [Concomitant]
     Active Substance: CHOLECALCIFEROL
  26. FISH OIL [Concomitant]
     Active Substance: FISH OIL
  27. OMEGA-3 ACIDS [Concomitant]
     Active Substance: OMEGA-3 FATTY ACIDS
  28. BIOTIN [Concomitant]
     Active Substance: BIOTIN
  29. GELATIN [Concomitant]
     Active Substance: GELATIN
  30. TRIPLE MAGNESIUM COMPLEX [Concomitant]
  31. GABAPENTIN [Concomitant]
     Active Substance: GABAPENTIN
     Indication: Product used for unknown indication
  32. CETIRIZINE HYDROCHLORIDE [Concomitant]
     Active Substance: CETIRIZINE HYDROCHLORIDE
     Indication: Product used for unknown indication
  33. GLUTATHIONE [Concomitant]
     Active Substance: GLUTATHIONE
     Indication: Product used for unknown indication
  34. CALCIUM\CHOLECALCIFEROL [Concomitant]
     Active Substance: CALCIUM\CHOLECALCIFEROL
  35. TRAMADOL HCL [Concomitant]
     Active Substance: TRAMADOL HYDROCHLORIDE
  36. CLARITIN-D 12 HOUR [Concomitant]
     Active Substance: LORATADINE\PSEUDOEPHEDRINE SULFATE
  37. ULTRAM [Concomitant]
     Active Substance: TRAMADOL HYDROCHLORIDE
  38. LOVENOX [Concomitant]
     Active Substance: ENOXAPARIN SODIUM
  39. DIETARY SUPPLEMENT [Concomitant]
     Active Substance: DIETARY SUPPLEMENT
  40. TIZANIDINE HYDROCHLORIDE [Concomitant]
     Active Substance: TIZANIDINE HYDROCHLORIDE
  41. TRAMADOL [Concomitant]
     Active Substance: TRAMADOL
  42. CETIRIZINE [Concomitant]
     Active Substance: CETIRIZINE HYDROCHLORIDE
  43. OXYCODONE [Concomitant]
     Active Substance: OXYCODONE
  44. ALBUTEROL [Concomitant]
     Active Substance: ALBUTEROL
  45. ACETYLCARNITINE [Concomitant]
     Active Substance: ACETYLCARNITINE
  46. DIPHENHYDRAMINE [Concomitant]
     Active Substance: DIPHENHYDRAMINE
  47. VITAMIN B COMPLEX [Concomitant]
     Active Substance: CYANOCOBALAMIN\DEXPANTHENOL\NIACINAMIDE\PYRIDOXINE HYDROCHLORIDE\RIBOFLAVIN 5^-PHOSPHATE SODIUM\THIA
  48. HERBALS\TURMERIC [Concomitant]
     Active Substance: HERBALS\TURMERIC
  49. VITAMIN K [Concomitant]
     Active Substance: PHYTONADIONE
  50. Hair skin nails [Concomitant]
  51. QUERCETIN [Concomitant]
     Active Substance: QUERCETIN
  52. ADVIL [Concomitant]
     Active Substance: IBUPROFEN
  53. OXYCODONE HYDROCHLORIDE [Concomitant]
     Active Substance: OXYCODONE HYDROCHLORIDE
  54. CALCIUM [Concomitant]
     Active Substance: CALCIUM
  55. GARLIC [Concomitant]
     Active Substance: GARLIC
  56. AIRSUPRA [Concomitant]
     Active Substance: ALBUTEROL SULFATE\BUDESONIDE
  57. DIPHENHYDRAMINE HYDROCHLORIDE [Concomitant]
     Active Substance: DIPHENHYDRAMINE HYDROCHLORIDE
  58. MAGNESIUM [Concomitant]
     Active Substance: MAGNESIUM

REACTIONS (19)
  - Hernia [Unknown]
  - Sleep disorder [Unknown]
  - Fall [Unknown]
  - Back disorder [Unknown]
  - Sinus congestion [Unknown]
  - Musculoskeletal discomfort [Unknown]
  - Multiple allergies [Recovering/Resolving]
  - Staphylococcus test positive [Unknown]
  - Road traffic accident [Unknown]
  - Post-traumatic neck syndrome [Unknown]
  - Product use issue [Unknown]
  - Insurance issue [Unknown]
  - Sinusitis [Unknown]
  - Pain [Unknown]
  - Abdominal discomfort [Unknown]
  - Infusion site reaction [Unknown]
  - Infusion site extravasation [Unknown]
  - Pain in extremity [Unknown]
  - Headache [Unknown]

NARRATIVE: CASE EVENT DATE: 20250103
